FAERS Safety Report 7233393 (Version 6)
Quarter: 2014Q4

REPORT INFORMATION
  Report Type: Spontaneous
  Country: US (occurrence: US)
  Receive Date: 20091229
  Receipt Date: 20141225
  Transmission Date: 20150529
  Serious: Yes (Death, Hospitalization, Other)
  Sender: FDA-Public Use
  Company Number: US-ROCHE-676835

PATIENT
  Age: 1 Year
  Sex: Male
  Weight: 11.21 kg

DRUGS (71)
  1. BACTRIM [Concomitant]
     Active Substance: SULFAMETHOXAZOLE\TRIMETHOPRIM
     Indication: PRODUCT USED FOR UNKNOWN INDICATION
  2. RANITIDINE [Concomitant]
     Active Substance: RANITIDINE\RANITIDINE HYDROCHLORIDE
  3. CLONAZEPAM. [Concomitant]
     Active Substance: CLONAZEPAM
     Route: 065
  4. CEFTRIAXONE. [Concomitant]
     Active Substance: CEFTRIAXONE
     Route: 065
  5. ONDANSETRON [Concomitant]
     Active Substance: ONDANSETRON
  6. FOLIC ACID. [Concomitant]
     Active Substance: FOLIC ACID
  7. ALBUMIN [Concomitant]
     Active Substance: ALBUMIN (HUMAN)
  8. PANTOPRAZOLE [Concomitant]
     Active Substance: PANTOPRAZOLE SODIUM
  9. LEVOFLOXACIN. [Concomitant]
     Active Substance: LEVOFLOXACIN
  10. PHOSPHENYTOIN [Concomitant]
  11. HYDRALAZINE [Concomitant]
     Active Substance: HYDRALAZINE HYDROCHLORIDE
  12. ALBUTEROL. [Concomitant]
     Active Substance: ALBUTEROL
  13. VANCOMYCIN [Concomitant]
     Active Substance: VANCOMYCIN
     Route: 065
  14. CEFOTAXIME [Concomitant]
     Active Substance: CEFOTAXIME\CEFOTAXIME SODIUM
  15. DAPTOMYCIN. [Concomitant]
     Active Substance: DAPTOMYCIN
  16. HYDROMORPHONE [Concomitant]
     Active Substance: HYDROMORPHONE
  17. RIFAMPIN. [Concomitant]
     Active Substance: RIFAMPIN
     Route: 048
  18. MORPHINE [Concomitant]
     Active Substance: MORPHINE
  19. FUROSEMIDE. [Concomitant]
     Active Substance: FUROSEMIDE
     Route: 065
  20. OSELTAMIVIR [Concomitant]
     Active Substance: OSELTAMIVIR
     Route: 065
  21. VASOPRESSIN. [Concomitant]
     Active Substance: VASOPRESSIN
  22. CISATRACURIUM [Concomitant]
     Active Substance: CISATRACURIUM
  23. FENTANYL. [Concomitant]
     Active Substance: FENTANYL
  24. FILGRASTIM [Concomitant]
     Active Substance: FILGRASTIM
     Route: 065
     Dates: start: 20091102, end: 20091107
  25. FLUCONAZOLE. [Concomitant]
     Active Substance: FLUCONAZOLE
  26. NITROPRUSSIDE [Concomitant]
     Active Substance: NITROPRUSSIDE
  27. ENALAPRILAT. [Concomitant]
     Active Substance: ENALAPRILAT
  28. CAPTOPRIL. [Concomitant]
     Active Substance: CAPTOPRIL
     Dosage: 10 MG, QHS
     Route: 065
  29. PULMICORT TURBUHALER [Concomitant]
     Active Substance: BUDESONIDE
  30. ASA [Concomitant]
     Active Substance: ASPIRIN
  31. NYSTATIN. [Concomitant]
     Active Substance: NYSTATIN
  32. GENTAMICIN. [Concomitant]
     Active Substance: GENTAMICIN
  33. CEFTAZIDIME. [Concomitant]
     Active Substance: CEFTAZIDIME
     Dosage: 560 MG IN NS (0.9% SODIUM CHLORIDE) 14 ML
     Route: 065
  34. NITROGLYCERIN. [Concomitant]
     Active Substance: NITROGLYCERIN
  35. BUPIVACAINE [Concomitant]
     Active Substance: BUPIVACAINE
  36. TPN [Concomitant]
     Active Substance: AMINO ACIDS\DEXTROSE\ELECTROLYTES NOS\SOYBEAN OIL
  37. RITUXAN [Suspect]
     Active Substance: RITUXIMAB
     Indication: OPSOCLONUS MYOCLONUS
     Dosage: 750 MG/M2, Q2W?347 MG
     Route: 041
     Dates: start: 20081226, end: 20090109
  38. ACTH [Suspect]
     Active Substance: CORTICOTROPIN
     Route: 030
     Dates: start: 20081225, end: 20090124
  39. IVIG [Concomitant]
     Active Substance: HUMAN IMMUNOGLOBULIN G
     Indication: PRODUCT USED FOR UNKNOWN INDICATION
     Dosage: UNK
     Route: 065
  40. CAPTOPRIL. [Concomitant]
     Active Substance: CAPTOPRIL
     Indication: PRODUCT USED FOR UNKNOWN INDICATION
     Dosage: 6.5 MG, BID
     Route: 048
  41. DEXAMETHASONE. [Concomitant]
     Active Substance: DEXAMETHASONE
     Dosage: 3 DAYS, EVERY 3 WEEKS
     Route: 042
     Dates: start: 200902, end: 200908
  42. ACETAMINOPHEN. [Concomitant]
     Active Substance: ACETAMINOPHEN
     Route: 048
  43. TRAZODONE [Concomitant]
     Active Substance: TRAZODONE HYDROCHLORIDE
     Route: 048
  44. LORAZEPAM. [Concomitant]
     Active Substance: LORAZEPAM
  45. COSYNTROPIN. [Concomitant]
     Active Substance: COSYNTROPIN
  46. MIDAZOLAM [Concomitant]
     Active Substance: MIDAZOLAM\MIDAZOLAM HYDROCHLORIDE
  47. IVIG [Concomitant]
     Active Substance: HUMAN IMMUNOGLOBULIN G
     Route: 065
     Dates: start: 20081118, end: 20091023
  48. CALCIUM CARBONATE. [Concomitant]
     Active Substance: CALCIUM CARBONATE
     Indication: PRODUCT USED FOR UNKNOWN INDICATION
     Dosage: 750 MG, BID
     Route: 048
  49. DIPHENHYDRAMINE [Concomitant]
     Active Substance: DIPHENHYDRAMINE
  50. DOPAMINE [Concomitant]
     Active Substance: DOPAMINE\DOPAMINE HYDROCHLORIDE
  51. OXYBUTYNIN [Concomitant]
     Active Substance: OXYBUTYNIN
  52. PHENAZOPYRIDINE. [Concomitant]
     Active Substance: PHENAZOPYRIDINE
  53. MANNITOL. [Concomitant]
     Active Substance: MANNITOL
  54. RITUXAN [Suspect]
     Active Substance: RITUXIMAB
     Indication: ATAXIA
  55. CLONIDINE. [Concomitant]
     Active Substance: CLONIDINE
     Indication: PRODUCT USED FOR UNKNOWN INDICATION
     Dosage: 0.5 MG, TID
     Route: 065
  56. NIFEDIPINE. [Concomitant]
     Active Substance: NIFEDIPINE
     Indication: PRODUCT USED FOR UNKNOWN INDICATION
     Dosage: 3.5 MG, PRN
     Route: 048
  57. ALTEPLASE [Concomitant]
     Active Substance: ALTEPLASE
     Route: 065
  58. IBUPROFEN. [Concomitant]
     Active Substance: IBUPROFEN
     Route: 048
  59. ATROPINE [Concomitant]
     Active Substance: ATROPINE
  60. HEPARIN [Concomitant]
     Active Substance: HEPARIN SODIUM
  61. NICARDIPINE [Concomitant]
     Active Substance: NICARDIPINE
  62. ACTH [Suspect]
     Active Substance: CORTICOTROPIN
     Indication: PRODUCT USED FOR UNKNOWN INDICATION
     Dosage: 25 IU/M2, QOD
     Route: 030
     Dates: start: 20090818, end: 20091030
  63. AMLODIPINE [Concomitant]
     Active Substance: AMLODIPINE BESYLATE
     Indication: PRODUCT USED FOR UNKNOWN INDICATION
     Dosage: 3 MG, BID
     Route: 048
  64. PENTAMIDINE [Concomitant]
     Active Substance: PENTAMIDINE
     Indication: PRODUCT USED FOR UNKNOWN INDICATION
     Dosage: UNK
     Route: 065
  65. ERGOCALCIFEROL. [Concomitant]
     Active Substance: ERGOCALCIFEROL
  66. MEROPENEM. [Concomitant]
     Active Substance: MEROPENEM
  67. LINEZOLID. [Concomitant]
     Active Substance: LINEZOLID
  68. FERROUS SULFATE [Concomitant]
     Active Substance: FERROUS SULFATE\FERROUS SULFATE, DRIED
  69. KETAMINE [Concomitant]
     Active Substance: KETAMINE
  70. LIDOCAINE. [Concomitant]
     Active Substance: LIDOCAINE
  71. LEVETIRACETAM. [Concomitant]
     Active Substance: LEVETIRACETAM

REACTIONS (6)
  - Aplastic anaemia [Fatal]
  - Hypotension [Recovered/Resolved]
  - Pancytopenia [Recovered/Resolved]
  - Sepsis [Fatal]
  - Haemorrhage intracranial [Recovered/Resolved]
  - Respiratory failure [Recovered/Resolved]

NARRATIVE: CASE EVENT DATE: 20081226
